FAERS Safety Report 9989231 (Version 8)
Quarter: 2014Q2

REPORT INFORMATION
  Report Type: Spontaneous
  Country: US (occurrence: None)
  Receive Date: 20131023
  Receipt Date: 20140520
  Transmission Date: 20141212
  Serious: Yes (Other)
  Sender: FDA-Public Use
  Company Number: ADR-2013-01498

PATIENT
  Sex: Male

DRUGS (1)
  1. LIORESAL [Suspect]
     Indication: MUSCLE SPASTICITY
     Dosage: SEE B5
     Dates: start: 200804

REACTIONS (17)
  - Muscle spasms [None]
  - Bone pain [None]
  - Muscular weakness [None]
  - Muscle spasms [None]
  - Condition aggravated [None]
  - Pain [None]
  - No therapeutic response [None]
  - Muscle spasticity [None]
  - Musculoskeletal stiffness [None]
  - Obsessive-compulsive personality disorder [None]
  - Device malfunction [None]
  - Coccydynia [None]
  - Muscle spasticity [None]
  - Incorrect dose administered by device [None]
  - Hypertonia [None]
  - Underdose [None]
  - Movement disorder [None]
